FAERS Safety Report 8854126 (Version 1)
Quarter: 2012Q4

REPORT INFORMATION
  Report Type: Spontaneous
  Country: US (occurrence: None)
  Receive Date: 20121018
  Receipt Date: 20121018
  Transmission Date: 20130627
  Serious: Yes (Other)
  Sender: FDA-Public Use
  Company Number: 2012100044

PATIENT

DRUGS (1)
  1. DYMISTA [Suspect]
     Dosage: IN

REACTIONS (2)
  - Convulsion [None]
  - Tremor [None]
